FAERS Safety Report 5959781-8 (Version None)
Quarter: 2008Q4

REPORT INFORMATION
  Report Type: 
  Country: None (occurrence: None)
  Receive Date: 20081120
  Receipt Date: 20081111
  Transmission Date: 20090506
  Serious: Yes (Other)
  Sender: FDA-Public Use
  Company Number: A0679369A

PATIENT
  Sex: Male

DRUGS (3)
  1. PAXIL [Suspect]
     Indication: ANXIETY
     Dosage: 20MG PER DAY
     Dates: start: 20010521
  2. PAXIL CR [Suspect]
     Indication: DEPRESSION
     Dosage: 12.5MG PER DAY
     Dates: start: 20041101, end: 20050101
  3. PAROXETINE HCL [Suspect]
     Indication: DEPRESSION
     Dates: start: 20040105, end: 20060517

REACTIONS (5)
  - ATRIAL SEPTAL DEFECT [None]
  - COR TRIATRIATUM [None]
  - DRUG EXPOSURE DURING PREGNANCY [None]
  - MULTIPLE CONGENITAL ABNORMALITIES [None]
  - VENTRICULAR SEPTAL DEFECT [None]
